FAERS Safety Report 12359514 (Version 1)
Quarter: 2016Q2

REPORT INFORMATION
  Report Type: Spontaneous
  Country: US (occurrence: None)
  Receive Date: 20160511
  Receipt Date: 20160511
  Transmission Date: 20160815
  Serious: Yes (Hospitalization)
  Sender: FDA-Public Use
  Company Number: None

PATIENT
  Age: 64 Year
  Sex: Female

DRUGS (1)
  1. VALSARTAN. [Suspect]
     Active Substance: VALSARTAN
     Indication: HYPERTENSION
     Route: 048

REACTIONS (6)
  - Flushing [None]
  - Palpitations [None]
  - Hypertension [None]
  - Drug dispensing error [None]
  - Wrong drug administered [None]
  - Disorientation [None]

NARRATIVE: CASE EVENT DATE: 20160508
